FAERS Safety Report 12144292 (Version 1)
Quarter: 2016Q1

REPORT INFORMATION
  Report Type: Spontaneous
  Country: US (occurrence: US)
  Receive Date: 20160304
  Receipt Date: 20160304
  Transmission Date: 20160526
  Serious: Yes (Other)
  Sender: FDA-Public Use
  Company Number: US-UNITED THERAPEUTICS-UNT-2016-002729

PATIENT
  Sex: Female

DRUGS (2)
  1. REMODULIN [Suspect]
     Active Substance: TREPROSTINIL
     Indication: PULMONARY ARTERIAL HYPERTENSION
     Dosage: 0.025 ?G/KG, Q48H
     Route: 058
     Dates: start: 20140813
  2. REMODULIN [Suspect]
     Active Substance: TREPROSTINIL
     Dosage: 0.061 ?G/KG, CONTINUING
     Route: 058
     Dates: start: 20141128

REACTIONS (3)
  - Dyspnoea [Unknown]
  - Hypopnoea [Unknown]
  - Psychomotor seizures [Unknown]

NARRATIVE: CASE EVENT DATE: 20160218
